FAERS Safety Report 9993643 (Version 2)
Quarter: 2014Q1

REPORT INFORMATION
  Report Type: Report from Study
  Country: KR (occurrence: KR)
  Receive Date: 20140310
  Receipt Date: 20140322
  Transmission Date: 20141002
  Serious: Yes (Hospitalization)
  Sender: FDA-Public Use
  Company Number: KR-MERCK-1403KOR002661

PATIENT
  Age: 55 Year
  Sex: Male
  Weight: 38.6 kg

DRUGS (5)
  1. VORINOSTAT [Suspect]
     Indication: GASTRIC CANCER
     Dosage: 400 MG, QD; STRENGTH: 400MG
     Route: 048
     Dates: start: 20130927, end: 20140208
  2. CAPECITABINE [Suspect]
     Indication: GASTRIC CANCER
     Dosage: STRENGTH: 1000 MG/M2, BID TOTAL DAILY DOSE: 2900 MG
     Route: 048
     Dates: start: 20130927, end: 20140211
  3. CISPLATIN [Suspect]
     Indication: GASTRIC CANCER
     Dosage: STRENGTH: 60MG/M2, QD; TOTAL DAILY DOSE: 86 MG
     Route: 042
     Dates: start: 20130927, end: 20140128
  4. SODIUM BICARBONATE [Concomitant]
     Indication: PROPHYLAXIS
     Dosage: GARGLE-INTERMITTENT
     Dates: start: 20130927
  5. MEGESTROL ACETATE [Concomitant]
     Indication: DECREASED APPETITE
     Dosage: 10 ML-INTERMITTENT
     Dates: start: 20130927

REACTIONS (1)
  - Pneumonia [Recovered/Resolved]
